FAERS Safety Report 8074613-2 (Version None)
Quarter: 2012Q1

REPORT INFORMATION
  Report Type: 
  Country: None (occurrence: None)
  Receive Date: 20120126
  Receipt Date: 20120118
  Transmission Date: 20120608
  Serious: Yes (Hospitalization)
  Sender: FDA-Public Use
  Company Number: CA-ABBOTT-12P-028-0894673-00

PATIENT
  Sex: Female
  Weight: 68.1 kg

DRUGS (3)
  1. HUMIRA [Suspect]
     Route: 058
     Dates: start: 20110509, end: 20110715
  2. HUMIRA [Suspect]
     Route: 058
     Dates: start: 20110721, end: 20110801
  3. HUMIRA [Suspect]
     Indication: CROHN'S DISEASE
     Route: 058
     Dates: start: 20101231, end: 20110508

REACTIONS (2)
  - INTESTINAL OBSTRUCTION [None]
  - ABSCESS [None]
